FAERS Safety Report 16432494 (Version 1)
Quarter: 2019Q2

REPORT INFORMATION
  Report Type: Spontaneous
  Country: US (occurrence: US)
  Receive Date: 20190614
  Receipt Date: 20190614
  Transmission Date: 20190711
  Serious: Yes (Other)
  Sender: FDA-Public Use
  Company Number: US-AMGEN-USASP2019094916

PATIENT
  Age: 50 Year
  Sex: Male
  Weight: 103.86 kg

DRUGS (7)
  1. VOLTAREN [DICLOFENAC] [Concomitant]
     Active Substance: DICLOFENAC SODIUM
     Dosage: UNK
  2. PREDNISONE. [Suspect]
     Active Substance: PREDNISONE
     Indication: PRODUCT USED FOR UNKNOWN INDICATION
     Dosage: 20 MILLIGRAM, QD
     Route: 065
  3. TRAMADOL. [Concomitant]
     Active Substance: TRAMADOL
     Dosage: UNK
  4. SULFASALAZINE. [Concomitant]
     Active Substance: SULFASALAZINE
     Dosage: UNK 500 MG TABLET (2 TABLETS 2 TIMES PER DAY)
     Dates: start: 20131010
  5. METHOTREXATE SODIUM. [Concomitant]
     Active Substance: METHOTREXATE SODIUM
     Dosage: 25 MILLIGRAM, QWK
     Dates: start: 20131010
  6. ENBREL [Suspect]
     Active Substance: ETANERCEPT
     Indication: RHEUMATOID ARTHRITIS
     Dosage: UNK
     Route: 065
     Dates: start: 2005
  7. DICLOFENAC SODIUM. [Concomitant]
     Active Substance: DICLOFENAC SODIUM
     Dosage: UNK 75 MG TABLET (1 CAPLET, 2 TIMES PER DAY)
     Dates: start: 20131010

REACTIONS (15)
  - Knee operation [Unknown]
  - Gastrooesophageal reflux disease [Recovering/Resolving]
  - Weight increased [Unknown]
  - Contusion [Unknown]
  - Tinnitus [Unknown]
  - Acquired epidermolysis bullosa [Unknown]
  - Swelling [Unknown]
  - Blood pressure increased [Unknown]
  - Headache [Unknown]
  - Rheumatoid arthritis [Unknown]
  - Back pain [Unknown]
  - Glossodynia [Unknown]
  - Latent tuberculosis [Unknown]
  - Flank pain [Unknown]
  - Vision blurred [Unknown]

NARRATIVE: CASE EVENT DATE: 2011
